FAERS Safety Report 5437982-5 (Version None)
Quarter: 2007Q3

REPORT INFORMATION
  Report Type: 
  Country: None (occurrence: None)
  Receive Date: 20070831
  Receipt Date: 20070629
  Transmission Date: 20080115
  Serious: No
  Sender: FDA-Public Use
  Company Number: A0660646A

PATIENT
  Age: 66 Year
  Sex: Female

DRUGS (2)
  1. ALLI [Suspect]
     Dates: start: 20070620
  2. ASPIRIN [Concomitant]

REACTIONS (4)
  - FAECES DISCOLOURED [None]
  - RECTAL DISCHARGE [None]
  - STEATORRHOEA [None]
  - THERAPEUTIC RESPONSE UNEXPECTED [None]
